FAERS Safety Report 4678306-0 (Version None)
Quarter: 2005Q2

REPORT INFORMATION
  Report Type: 
  Country: None (occurrence: None)
  Receive Date: 20050527
  Receipt Date: 20050510
  Transmission Date: 20051028
  Serious: Yes (Hospitalization)
  Sender: FDA-Public Use
  Company Number: MAG-2005-0000351

PATIENT
  Age: 75 Year
  Sex: Male

DRUGS (2)
  1. MORPHINE SULFATE [Suspect]
     Indication: ARTERIOSCLEROSIS
     Dosage: 30 MG, DAILY, ORAL
     Route: 048
     Dates: start: 20050301
  2. VALPROATE SODIUM [Concomitant]

REACTIONS (2)
  - OEDEMA [None]
  - URINE OUTPUT INCREASED [None]
